FAERS Safety Report 18206455 (Version 2)
Quarter: 2021Q2

REPORT INFORMATION
  Report Type: Spontaneous
  Country: CA (occurrence: CA)
  Receive Date: 20200828
  Receipt Date: 20210429
  Transmission Date: 20210717
  Serious: Yes (Death, Other)
  Sender: FDA-Public Use
  Company Number: CA-ASTRAZENECA-2020SF07904

PATIENT
  Age: 61 Year
  Sex: Female

DRUGS (13)
  1. ATIVAN [Suspect]
     Active Substance: LORAZEPAM
     Indication: PRODUCT USED FOR UNKNOWN INDICATION
     Route: 065
  2. GABAPENTIN. [Suspect]
     Active Substance: GABAPENTIN
     Indication: PRODUCT USED FOR UNKNOWN INDICATION
     Route: 065
  3. PROPOFOL. [Concomitant]
     Active Substance: PROPOFOL
  4. QUETIAPINE FUMARATE. [Suspect]
     Active Substance: QUETIAPINE FUMARATE
     Indication: PRODUCT USED FOR UNKNOWN INDICATION
     Route: 048
  5. PHENYTOIN. [Concomitant]
     Active Substance: PHENYTOIN
  6. ASA [Concomitant]
     Active Substance: ASPIRIN
  7. TOPIRAMATE. [Concomitant]
     Active Substance: TOPIRAMATE
  8. CLOPIDOGREL BISULFATE. [Concomitant]
     Active Substance: CLOPIDOGREL BISULFATE
  9. METHOTREXATE. [Concomitant]
     Active Substance: METHOTREXATE
  10. PREDNISONE. [Concomitant]
     Active Substance: PREDNISONE
  11. METOPROLOL. [Concomitant]
     Active Substance: METOPROLOL
  12. CYMBALTA [Suspect]
     Active Substance: DULOXETINE HYDROCHLORIDE
     Indication: PRODUCT USED FOR UNKNOWN INDICATION
     Route: 065
  13. OXYCODONE [Suspect]
     Active Substance: OXYCODONE
     Indication: PRODUCT USED FOR UNKNOWN INDICATION
     Route: 065

REACTIONS (6)
  - Brain oedema [Fatal]
  - Ascites [Fatal]
  - Ischaemic cerebral infarction [Fatal]
  - Brain herniation [Fatal]
  - Serotonin syndrome [Fatal]
  - Hepatic cirrhosis [Fatal]
